FAERS Safety Report 6407453-8 (Version None)
Quarter: 2009Q4

REPORT INFORMATION
  Report Type: 
  Country: None (occurrence: None)
  Receive Date: 20091020
  Receipt Date: 20091008
  Transmission Date: 20100525
  Serious: Yes (Death, Hospitalization, Other)
  Sender: FDA-Public Use
  Company Number: US-PFIZER INC-2009237510

PATIENT
  Sex: Male
  Weight: 167 kg

DRUGS (7)
  1. SUTENT [Suspect]
     Indication: METASTATIC RENAL CELL CARCINOMA
     Dosage: 50 MG, 1X/DAY
     Route: 048
     Dates: start: 20090601, end: 20090609
  2. ASPIRIN [Concomitant]
     Dosage: 81 MG, 1X/DAY
  3. PLAVIX [Concomitant]
     Dosage: 75 MG, 1X/DAY
  4. AMBIEN [Concomitant]
     Dosage: 5 MG, UNK
  5. LASIX [Concomitant]
     Dosage: 20 MG, UNK
  6. PROMETHAZINE HYDROCHLORIDE [Concomitant]
     Dosage: 25 MG, UNK
  7. RAMIPRIL [Concomitant]
     Dosage: 5 MG, UNK

REACTIONS (15)
  - ABDOMINAL PAIN LOWER [None]
  - ACUTE HEPATIC FAILURE [None]
  - ASTHENIA [None]
  - CARDIAC FAILURE CONGESTIVE [None]
  - CARDIOMYOPATHY [None]
  - CHROMATURIA [None]
  - COAGULOPATHY [None]
  - ENCEPHALOPATHY [None]
  - HYPONATRAEMIA [None]
  - NAUSEA [None]
  - NEUTROPENIA [None]
  - RENAL FAILURE ACUTE [None]
  - SKIN LESION [None]
  - THROMBOCYTOPENIA [None]
  - VOMITING [None]
